FAERS Safety Report 9431538 (Version 4)
Quarter: 2015Q4

REPORT INFORMATION
  Report Type: Report from Study
  Country: CA (occurrence: CA)
  Receive Date: 20130731
  Receipt Date: 20151118
  Transmission Date: 20160305
  Serious: Yes (Other)
  Sender: FDA-Public Use
  Company Number: CA-ROCHE-1254348

PATIENT
  Age: 56 Year
  Sex: Male
  Weight: 111.6 kg

DRUGS (18)
  1. ACTEMRA [Suspect]
     Active Substance: TOCILIZUMAB
     Indication: RHEUMATOID ARTHRITIS
     Route: 042
     Dates: start: 20130417
  2. METFORMIN [Concomitant]
     Active Substance: METFORMIN HYDROCHLORIDE
  3. ATENOLOL. [Concomitant]
     Active Substance: ATENOLOL
  4. FENTANYL. [Concomitant]
     Active Substance: FENTANYL
  5. LIPITOR [Concomitant]
     Active Substance: ATORVASTATIN CALCIUM
  6. FLOMAX [Concomitant]
     Active Substance: TAMSULOSIN HYDROCHLORIDE
  7. PREDNISONE. [Concomitant]
     Active Substance: PREDNISONE
  8. ZOPICLONE [Concomitant]
     Active Substance: ZOPICLONE
  9. METHOTREXATE [Concomitant]
     Active Substance: METHOTREXATE
  10. ACETYLSALICYLIC ACID [Concomitant]
     Active Substance: ASPIRIN
  11. RISEDRONATE [Concomitant]
     Active Substance: RISEDRONATE SODIUM
     Route: 065
  12. LYRICA [Concomitant]
     Active Substance: PREGABALIN
  13. EZETROL [Concomitant]
     Active Substance: EZETIMIBE
  14. SYMBICORT [Concomitant]
     Active Substance: BUDESONIDE\FORMOTEROL FUMARATE DIHYDRATE
  15. VENTOLIN [Concomitant]
     Active Substance: ALBUTEROL SULFATE
  16. VICTOZA [Concomitant]
     Active Substance: LIRAGLUTIDE
  17. FLONASE [Concomitant]
     Active Substance: FLUTICASONE PROPIONATE
  18. NEXIUM [Concomitant]
     Active Substance: ESOMEPRAZOLE MAGNESIUM

REACTIONS (5)
  - Thrombosis [Unknown]
  - Osteoporosis [Unknown]
  - Vertebroplasty [Unknown]
  - Bone loss [Unknown]
  - Spinal fracture [Unknown]

NARRATIVE: CASE EVENT DATE: 20141019
